FAERS Safety Report 23241368 (Version 1)
Quarter: 2023Q4

REPORT INFORMATION
  Report Type: Spontaneous
  Country: FR (occurrence: FR)
  Receive Date: 20231129
  Receipt Date: 20231129
  Transmission Date: 20240110
  Serious: Yes (Other)
  Sender: FDA-Public Use
  Company Number: None

PATIENT
  Age: 55 Year
  Sex: Male
  Weight: 118 kg

DRUGS (19)
  1. PANTOPRAZOLE [Suspect]
     Active Substance: PANTOPRAZOLE
     Indication: Prophylaxis against gastrointestinal ulcer
     Dosage: 40 MILLIGRAM, QD
     Route: 048
     Dates: start: 20231011, end: 20231017
  2. FUROSEMIDE [Suspect]
     Active Substance: FUROSEMIDE
     Indication: Oedema peripheral
     Dosage: UNK
     Route: 048
     Dates: start: 20231014, end: 20231016
  3. LETERMOVIR [Suspect]
     Active Substance: LETERMOVIR
     Indication: Bone marrow transplant
     Dosage: 480 MILLIGRAM, QD
     Route: 048
     Dates: start: 20231011, end: 20231018
  4. MONTMORILLONITE [Suspect]
     Active Substance: MONTMORILLONITE
     Dosage: 6 GRAM, QD
     Route: 048
     Dates: start: 20231011, end: 20231017
  5. AMOXICILLIN [Suspect]
     Active Substance: AMOXICILLIN
     Indication: Antibiotic prophylaxis
     Dosage: 2 GRAM, QD
     Route: 030
     Dates: start: 20231012, end: 20231017
  6. ACETAMINOPHEN [Suspect]
     Active Substance: ACETAMINOPHEN
     Indication: Analgesic intervention supportive therapy
     Dosage: 3 GRAM, QD
     Route: 042
     Dates: start: 20231012, end: 20231013
  7. RACECADOTRIL [Suspect]
     Active Substance: RACECADOTRIL
     Indication: Diarrhoea
     Dosage: 100 MILLIGRAM, QD
     Route: 048
     Dates: start: 20231011, end: 20231017
  8. NEFOPAM HYDROCHLORIDE [Suspect]
     Active Substance: NEFOPAM HYDROCHLORIDE
     Indication: Analgesic intervention supportive therapy
     Dosage: UNK
     Route: 048
     Dates: start: 20231012, end: 20231012
  9. PROGRAF [Suspect]
     Active Substance: TACROLIMUS
     Indication: Bone marrow transplant
     Dosage: 5 MILLIGRAM, QD
     Route: 048
     Dates: start: 20231013, end: 20231017
  10. AMIODARONE [Concomitant]
     Active Substance: AMIODARONE
  11. URSODIOL [Concomitant]
     Active Substance: URSODIOL
  12. VALACYCLOVIR HYDROCHLORIDE [Concomitant]
     Active Substance: VALACYCLOVIR HYDROCHLORIDE
  13. IRON\MINERALS\POTASSIUM IOD\SODIUM FLUORIDE\SODIUM MOLYBDATE\SODIUM SE [Concomitant]
     Active Substance: IRON\MINERALS\POTASSIUM IOD\SODIUM FLUORIDE\SODIUM MOLYBDATE\SODIUM SELENITE\ZINC
  14. ARANESP [Concomitant]
     Active Substance: DARBEPOETIN ALFA
  15. LEUCOVORIN CALCIUM [Concomitant]
     Active Substance: LEUCOVORIN CALCIUM
  16. LEVOTHYROXINE [Concomitant]
     Active Substance: LEVOTHYROXINE
  17. ATOVAQUONE [Concomitant]
     Active Substance: ATOVAQUONE
  18. BISOPROLOL FUMARATE [Concomitant]
     Active Substance: BISOPROLOL FUMARATE
  19. CERNEVIT [Concomitant]
     Active Substance: VITAMINS

REACTIONS (1)
  - Lichenoid keratosis [Recovered/Resolved]

NARRATIVE: CASE EVENT DATE: 20231016
